FAERS Safety Report 13053708 (Version 1)
Quarter: 2016Q4

REPORT INFORMATION
  Report Type: Spontaneous
  Country: US (occurrence: US)
  Receive Date: 20161221
  Receipt Date: 20161221
  Transmission Date: 20170207
  Serious: Yes (Hospitalization)
  Sender: FDA-Public Use
  Company Number: None

PATIENT
  Age: 53 Year
  Sex: Female

DRUGS (1)
  1. AMPYRA [Suspect]
     Active Substance: DALFAMPRIDINE
     Indication: MULTIPLE SCLEROSIS
     Route: 048
     Dates: start: 20140516

REACTIONS (7)
  - Urine analysis abnormal [None]
  - Blood glucose abnormal [None]
  - Respiratory failure [None]
  - Pneumonia [None]
  - Liver function test abnormal [None]
  - Acute respiratory failure [None]
  - Pneumonitis [None]

NARRATIVE: CASE EVENT DATE: 20161113
